FAERS Safety Report 7755327-2 (Version None)
Quarter: 2011Q3

REPORT INFORMATION
  Report Type: 
  Country: None (occurrence: None)
  Receive Date: 20110916
  Receipt Date: 20110819
  Transmission Date: 20111222
  Serious: No
  Sender: FDA-Public Use
  Company Number: US-JNJFOC-20110809307

PATIENT
  Age: 29 Year
  Sex: Male
  Weight: 90.72 kg

DRUGS (4)
  1. POLYGAM S/D [Concomitant]
     Indication: HYPERGAMMAGLOBULINAEMIA
     Route: 058
  2. DEPAKOTE [Concomitant]
     Indication: BIPOLAR DISORDER
     Route: 048
  3. INVEGA [Suspect]
     Route: 048
     Dates: start: 20110801
  4. INVEGA [Suspect]
     Indication: BIPOLAR DISORDER
     Route: 048

REACTIONS (7)
  - INSOMNIA [None]
  - VERBAL ABUSE [None]
  - DRUG INEFFECTIVE [None]
  - MANIA [None]
  - PSYCHOTIC DISORDER [None]
  - THINKING ABNORMAL [None]
  - DECREASED APPETITE [None]
